FAERS Safety Report 8595747-X (Version None)
Quarter: 2012Q3

REPORT INFORMATION
  Report Type: 
  Country: None (occurrence: None)
  Receive Date: 20120815
  Receipt Date: 20120809
  Transmission Date: 20120928
  Serious: Yes (Hospitalization, Other)
  Sender: FDA-Public Use
  Company Number: SE-ROCHE-1072086

PATIENT
  Age: 45 Year
  Sex: Female
  Weight: 53 kg

DRUGS (7)
  1. ZELBORAF [Suspect]
     Dates: start: 20120402, end: 20120430
  2. ZELBORAF [Suspect]
     Indication: MALIGNANT MELANOMA
     Route: 048
     Dates: start: 20111014
  3. ZELBORAF [Suspect]
     Dates: start: 20111125, end: 20120207
  4. ZELBORAF [Suspect]
     Dates: start: 20111021, end: 20111115
  5. ZELBORAF [Suspect]
     Dates: start: 20111116, end: 20111124
  6. ZELBORAF [Suspect]
     Dates: start: 20120501, end: 20120511
  7. ZELBORAF [Suspect]
     Dates: start: 20120208, end: 20120401

REACTIONS (3)
  - HEADACHE [None]
  - NAUSEA [None]
  - BLOOD CREATININE INCREASED [None]
